FAERS Safety Report 11118743 (Version 1)
Quarter: 2015Q2

REPORT INFORMATION
  Report Type: Spontaneous
  Country: US (occurrence: None)
  Receive Date: 20150515
  Receipt Date: 20150515
  Transmission Date: 20150821
  Serious: Yes (Disabling)
  Sender: FDA-Public Use
  Company Number: None

PATIENT
  Age: 63 Year
  Sex: Female

DRUGS (1)
  1. OSPHENA [Suspect]
     Active Substance: OSPEMIFENE
     Route: 048

REACTIONS (3)
  - Arthralgia [None]
  - Pain in extremity [None]
  - Arthropathy [None]

NARRATIVE: CASE EVENT DATE: 20150502
